FAERS Safety Report 4886465-X (Version None)
Quarter: 2006Q1

REPORT INFORMATION
  Report Type: 
  Country: None (occurrence: None)
  Receive Date: 20060118
  Receipt Date: 20060109
  Transmission Date: 20060701
  Serious: Yes (Hospitalization, Other)
  Sender: FDA-Public Use
  Company Number: 2006006321

PATIENT
  Age: 46 Year
  Sex: Female

DRUGS (2)
  1. SOLU-MEDROL (METHYLPREDNISOLONE SODUIM SUCCINATE) [Suspect]
     Indication: BRONCHITIS
     Dosage: INTRAVENOUS
     Route: 042
     Dates: start: 20051228, end: 20060103
  2. PREDNISONE [Suspect]
     Indication: BRONCHITIS
     Dates: start: 20051229

REACTIONS (7)
  - AGITATION [None]
  - ANXIETY [None]
  - ASTHMA [None]
  - BRONCHITIS [None]
  - CONDITION AGGRAVATED [None]
  - CONFUSIONAL STATE [None]
  - IRRITABILITY [None]
